FAERS Safety Report 18583599 (Version 3)
Quarter: 2021Q2

REPORT INFORMATION
  Report Type: Other
  Country: CA (occurrence: CA)
  Receive Date: 20201207
  Receipt Date: 20210519
  Transmission Date: 20210717
  Serious: Yes (Hospitalization, Other)
  Sender: FDA-Public Use
  Company Number: CA-CELLTRION INC.-2020CA033001

PATIENT

DRUGS (6)
  1. RITUXIMAB (UNKNOWN) [Suspect]
     Active Substance: RITUXIMAB
     Indication: AUTOIMMUNE HAEMOLYTIC ANAEMIA
     Dosage: 740 MG, 1 EVERY 1 WEEK
     Route: 042
  2. AZATHIOPRINE. [Concomitant]
     Active Substance: AZATHIOPRINE
     Indication: AUTOIMMUNE HAEMOLYTIC ANAEMIA
     Dosage: 50 MILLIGRAM, 1 EVERY 1 DAY
     Route: 048
  3. BENADRYL [Concomitant]
     Active Substance: DIPHENHYDRAMINE HYDROCHLORIDE
     Route: 048
  4. TYLENOL [Concomitant]
     Active Substance: ACETAMINOPHEN
     Route: 048
  5. DESOXIMETASONE. [Suspect]
     Active Substance: DESOXIMETASONE
     Indication: PRODUCT USED FOR UNKNOWN INDICATION
     Route: 065
  6. METHYLPREDNISOLONE SODIUM SUCCINATE. [Concomitant]
     Active Substance: METHYLPREDNISOLONE SODIUM SUCCINATE
     Route: 042

REACTIONS (14)
  - Wound infection [Recovered/Resolved]
  - Blood pressure diastolic abnormal [Recovered/Resolved]
  - Limb injury [Recovered/Resolved]
  - Fatigue [Recovered/Resolved]
  - Stoma site extravasation [Recovered/Resolved]
  - Cystitis [Recovered/Resolved]
  - Off label use [Recovered/Resolved]
  - Impaired healing [Recovered/Resolved]
  - Poor venous access [Recovered/Resolved]
  - Kidney infection [Recovered/Resolved]
  - Body temperature decreased [Recovered/Resolved]
  - Intentional product use issue [Recovered/Resolved]
  - Blood pressure systolic abnormal [Recovered/Resolved]
  - Blood pressure systolic increased [Recovered/Resolved]
